FAERS Safety Report 14899576 (Version 1)
Quarter: 2018Q2

REPORT INFORMATION
  Report Type: Spontaneous
  Country: ES (occurrence: ES)
  Receive Date: 20180516
  Receipt Date: 20180516
  Transmission Date: 20180711
  Serious: Yes (Death, Hospitalization)
  Sender: FDA-Public Use
  Company Number: ES-HORIZON-PRE-0200-2018

PATIENT
  Age: 72 Year
  Sex: Male

DRUGS (4)
  1. TRANKIMAZIN [Concomitant]
     Active Substance: ALPRAZOLAM
     Dosage: 0-0-1, 0.25 MG
     Route: 048
     Dates: start: 20161020
  2. COROPRES [Concomitant]
     Active Substance: CARVEDILOL
     Dosage: 1-0-1, 12.5 MG
     Route: 048
     Dates: start: 20161020
  3. PREDNISONE. [Suspect]
     Active Substance: PREDNISONE
     Indication: AUTOIMMUNE HEPATITIS
     Dosage: 40 MG IN 24 HOURS
     Route: 048
     Dates: start: 20161020, end: 20170727
  4. ADIRO [Concomitant]
     Active Substance: ASPIRIN
     Dosage: 0-1-0, 100 MG
     Route: 048
     Dates: start: 20161020

REACTIONS (1)
  - Pneumonia necrotising [Fatal]

NARRATIVE: CASE EVENT DATE: 20170704
